FAERS Safety Report 6555928 (Version 4)
Quarter: 2020Q3

REPORT INFORMATION
  Report Type: Report from Study
  Country: US (occurrence: US)
  Receive Date: 20080219
  Receipt Date: 20101123
  Transmission Date: 20201105
  Serious: Yes (Hospitalization, Other)
  Sender: FDA-Public Use
  Company Number: US-ROCHE-546485

PATIENT
  Age: 85 Year
  Sex: Female

DRUGS (1)
  1. IBANDRONIC ACID. [Suspect]
     Active Substance: IBANDRONIC ACID
     Indication: OSTEOPOROSIS
     Route: 048
     Dates: start: 2006

REACTIONS (8)
  - Fall [Unknown]
  - Hip fracture [Unknown]
  - Stress fracture [Unknown]
  - Fractured sacrum [Recovered/Resolved]
  - Wrist fracture [None]
  - Gastritis [Unknown]
  - Femur fracture [Unknown]
  - Tooth fracture [Unknown]

NARRATIVE: CASE EVENT DATE: 20060901
